FAERS Safety Report 8389754-X (Version None)
Quarter: 2012Q2

REPORT INFORMATION
  Report Type: 
  Country: None (occurrence: None)
  Receive Date: 20120529
  Receipt Date: 20120517
  Transmission Date: 20120825
  Serious: Yes (Other)
  Sender: FDA-Public Use
  Company Number: GB-BAYER-2012-050196

PATIENT
  Age: 27 Year
  Sex: Female

DRUGS (2)
  1. IMPLANON [Concomitant]
     Indication: CONTRACEPTION
     Dosage: UNK
  2. MIRENA [Suspect]
     Route: 015

REACTIONS (2)
  - UTERINE PERFORATION [None]
  - INFERTILITY [None]
